FAERS Safety Report 7465485-5 (Version None)
Quarter: 2011Q2

REPORT INFORMATION
  Report Type: 
  Country: None (occurrence: None)
  Receive Date: 20110509
  Receipt Date: 20081122
  Transmission Date: 20111010
  Serious: Yes (Other)
  Sender: FDA-Public Use
  Company Number: US-BAYER-200839512NA

PATIENT
  Age: 82 Year
  Sex: Female
  Weight: 83.9 kg

DRUGS (11)
  1. ZOCOR [Concomitant]
     Dosage: 40 MG/ HOUR OF SLEEP
     Route: 048
  2. TRASYLOL [Suspect]
     Indication: CORONARY ARTERY BYPASS
     Route: 042
     Dates: start: 20061001
  3. BACITRACIN [Concomitant]
  4. ALTACE [Concomitant]
     Dosage: 5 MG, QD
     Route: 048
  5. SYNTHROID [Concomitant]
     Dosage: 75 MG, QD
     Route: 048
  6. HEPARIN [Concomitant]
     Dosage: 10000 U, UNK
  7. PAPAVERINE [Concomitant]
     Dosage: 40 MG, UNK
  8. LOPRESSOR [Concomitant]
     Dosage: 25 MG, BID
     Route: 048
  9. AMICAR [Concomitant]
     Dosage: 10 G, UNK
  10. RED BLOOD CELLS [Concomitant]
     Dosage: 2 U, UNK
  11. PLAVIX [Concomitant]
     Dosage: 75 MG, QD
     Route: 048

REACTIONS (7)
  - STRESS [None]
  - UNEVALUABLE EVENT [None]
  - FEAR [None]
  - ANXIETY [None]
  - EMOTIONAL DISTRESS [None]
  - PAIN [None]
  - CEREBROVASCULAR ACCIDENT [None]
